FAERS Safety Report 5952666-2 (Version None)
Quarter: 2008Q4

REPORT INFORMATION
  Report Type: 
  Country: None (occurrence: None)
  Receive Date: 20081031
  Receipt Date: 20080812
  Transmission Date: 20090506
  Serious: Yes (Hospitalization, Other)
  Sender: FDA-Public Use
  Company Number: 2008-US-000316

PATIENT
  Age: 11 Year
  Sex: Male
  Weight: 29.2 kg

DRUGS (1)
  1. INCRELEX [Suspect]
     Indication: BODY HEIGHT BELOW NORMAL
     Dosage: 3.3 MG, BID, SUBCUTANEOUS
     Route: 058
     Dates: start: 20080409, end: 20080619

REACTIONS (4)
  - DIPLOPIA [None]
  - HEADACHE [None]
  - INTRACRANIAL PRESSURE INCREASED [None]
  - NECK PAIN [None]
